FAERS Safety Report 10167981 (Version 2)
Quarter: 2014Q2

REPORT INFORMATION
  Report Type: Spontaneous
  Country: FR (occurrence: FR)
  Receive Date: 20140512
  Receipt Date: 20140521
  Transmission Date: 20141212
  Serious: Yes (Hospitalization)
  Sender: FDA-Public Use
  Company Number: FR-GLAXOSMITHKLINE-B0990752A

PATIENT
  Age: 77 Year
  Sex: Male

DRUGS (21)
  1. NIMBEX [Suspect]
     Indication: ANAESTHESIA
     Route: 042
     Dates: start: 20121119, end: 20121119
  2. ZINNAT [Suspect]
     Indication: ANTIBIOTIC PROPHYLAXIS
     Route: 042
     Dates: start: 20121119, end: 20121119
  3. HEPARINE SODIUM [Suspect]
     Indication: EXTRACORPOREAL CIRCULATION
     Dosage: 15000IU SEE DOSAGE TEXT
     Route: 042
     Dates: start: 20121119, end: 20121119
  4. KARDEGIC [Suspect]
     Indication: PROPHYLAXIS
     Dosage: 75MG AT NIGHT
     Route: 048
  5. PROTAMINE [Suspect]
     Route: 042
     Dates: start: 20121119, end: 20121119
  6. HYPNOMIDATE [Suspect]
     Indication: ANAESTHESIA
     Route: 042
     Dates: start: 20121119, end: 20121119
  7. EXACYL [Suspect]
     Indication: HAEMORRHAGE PROPHYLAXIS
     Route: 042
     Dates: start: 20121119, end: 20121119
  8. KETAMINE [Suspect]
     Indication: ANAESTHESIA
     Route: 042
     Dates: start: 20121119, end: 20121119
  9. ATARAX [Suspect]
     Route: 048
     Dates: start: 20121118, end: 20121119
  10. PROPOFOL [Suspect]
     Indication: ANAESTHESIA
     Route: 042
     Dates: start: 20121119, end: 20121119
  11. SUFENTANIL [Suspect]
     Indication: ANAESTHESIA
     Route: 042
     Dates: start: 20121119, end: 20121119
  12. AMLOR [Concomitant]
     Indication: HYPERTENSION
     Dosage: 5MG IN THE MORNING
     Route: 048
  13. CRESTOR [Concomitant]
     Indication: DYSLIPIDAEMIA
     Dosage: 10MG AT NIGHT
     Route: 048
  14. INEXIUM [Concomitant]
     Indication: PROPHYLAXIS
     Dosage: 40MG PER DAY
     Route: 048
     Dates: start: 20121118
  15. LASILIX [Concomitant]
     Indication: CARDIAC FAILURE
     Dosage: 40MG IN THE MORNING
     Route: 048
  16. COVERSYL [Concomitant]
     Dates: end: 20121118
  17. HEMOSTATIC [Concomitant]
     Dates: start: 20121119
  18. NORADRENALINE ACID TARTRATE [Concomitant]
  19. COROTROPE [Concomitant]
  20. ATROPINE [Concomitant]
  21. EPHEDRINE [Concomitant]
     Route: 065

REACTIONS (2)
  - Post procedural haemorrhage [Recovered/Resolved]
  - Pericardial haemorrhage [Recovered/Resolved]
